FAERS Safety Report 5373334-4 (Version None)
Quarter: 2007Q2

REPORT INFORMATION
  Report Type: 
  Country: None (occurrence: None)
  Receive Date: 20070628
  Receipt Date: 20070625
  Transmission Date: 20071010
  Serious: Yes (Hospitalization)
  Sender: FDA-Public Use
  Company Number: HQWYE777225JUN07

PATIENT
  Sex: Male

DRUGS (5)
  1. CORDARONE [Suspect]
     Indication: ATRIAL FIBRILLATION
     Route: 048
     Dates: start: 20070416, end: 20070603
  2. CORDARONE [Suspect]
     Indication: PROPHYLAXIS
  3. CARVEDILOL [Concomitant]
     Route: 048
  4. EUTIROX [Concomitant]
     Indication: HYPOTHYROIDISM
     Route: 048
  5. EUTIROX [Concomitant]
     Indication: THYROIDECTOMY

REACTIONS (1)
  - PNEUMONIA [None]
